FAERS Safety Report 8705452 (Version 3)
Quarter: 2014Q3

REPORT INFORMATION
  Report Type: Spontaneous
  Country: US (occurrence: US)
  Receive Date: 20120803
  Receipt Date: 20140818
  Transmission Date: 20150326
  Serious: Yes (Hospitalization, Other)
  Sender: FDA-Public Use
  Company Number: US-009507513-2012SP022371

PATIENT
  Sex: Female
  Weight: 137.87 kg

DRUGS (1)
  1. NUVARING [Suspect]
     Active Substance: ETHINYL ESTRADIOL\ETONOGESTREL
     Indication: CONTRACEPTION
     Dosage: UNK
     Route: 067
     Dates: start: 20100514, end: 201008

REACTIONS (7)
  - Breast mass [Not Recovered/Not Resolved]
  - Anticoagulation drug level below therapeutic [Unknown]
  - Pulmonary fibrosis [Not Recovered/Not Resolved]
  - Pulmonary embolism [Recovering/Resolving]
  - Abdominal pain upper [Unknown]
  - Costochondritis [Unknown]
  - Anxiety [Unknown]

NARRATIVE: CASE EVENT DATE: 20100818
